FAERS Safety Report 21937945 (Version 2)
Quarter: 2023Q1

REPORT INFORMATION
  Report Type: Spontaneous
  Country: ES (occurrence: ES)
  Receive Date: 20230201
  Receipt Date: 20230206
  Transmission Date: 20230418
  Serious: Yes (Death, Other)
  Sender: FDA-Public Use
  Company Number: ES-JAZZ-2023-ES-001728

PATIENT
  Sex: Male

DRUGS (2)
  1. DEFITELIO [Suspect]
     Active Substance: DEFIBROTIDE SODIUM
     Indication: Prophylaxis
     Dosage: UNK
  2. DEFITELIO [Suspect]
     Active Substance: DEFIBROTIDE SODIUM
     Indication: Venoocclusive disease

REACTIONS (5)
  - Death [Fatal]
  - Thrombotic microangiopathy [Unknown]
  - Ascites [Unknown]
  - Haemorrhage [Unknown]
  - Off label use [Unknown]
